FAERS Safety Report 19360421 (Version 1)
Quarter: 2021Q2

REPORT INFORMATION
  Report Type: Spontaneous
  Country: CN (occurrence: CN)
  Receive Date: 20210601
  Receipt Date: 20210601
  Transmission Date: 20210717
  Serious: Yes (Other)
  Sender: FDA-Public Use
  Company Number: CN-OCTA-ALB02521CN

PATIENT
  Age: 86 Year
  Sex: Female
  Weight: 48 kg

DRUGS (4)
  1. HUMAN ALBUMIN 20% [Suspect]
     Active Substance: ALBUMIN HUMAN
     Indication: HYPOPROTEINAEMIA
     Route: 042
     Dates: start: 20210502, end: 20210506
  2. SODIUM CHLORIDE. [Concomitant]
     Active Substance: SODIUM CHLORIDE
     Indication: PNEUMONIA
     Dosage: ONCE DAILY ON 30?APR, TWICE DAILY FROM 01?MAY
     Route: 041
     Dates: start: 20210430, end: 20210513
  3. CEFTRIAXONE. [Concomitant]
     Active Substance: CEFTRIAXONE
     Indication: PNEUMONIA
     Route: 041
     Dates: start: 20210430, end: 20210501
  4. CEFOPERAZONE/SULBACTAM [Concomitant]
     Active Substance: CEFOPERAZONE\SULBACTAM
     Indication: PNEUMONIA
     Route: 041
     Dates: start: 20210501, end: 20210513

REACTIONS (1)
  - Diarrhoea [Recovered/Resolved]

NARRATIVE: CASE EVENT DATE: 20210502
